FAERS Safety Report 11993540 (Version 1)
Quarter: 2016Q1

REPORT INFORMATION
  Report Type: Spontaneous
  Country: US (occurrence: None)
  Receive Date: 20160202
  Receipt Date: 20160202
  Transmission Date: 20160526
  Serious: Yes (Hospitalization)
  Sender: FDA-Public Use
  Company Number: None

PATIENT
  Age: 67 Year
  Sex: Female

DRUGS (2)
  1. COPAXONE [Suspect]
     Active Substance: GLATIRAMER ACETATE
     Route: 058
     Dates: start: 20120504, end: 20151103
  2. COPAXONE [Suspect]
     Active Substance: GLATIRAMER ACETATE
     Route: 058
     Dates: start: 20151103

REACTIONS (7)
  - Vomiting [None]
  - Generalised erythema [None]
  - Incorrect route of drug administration [None]
  - Wrong technique in product usage process [None]
  - Therapy change [None]
  - Feeling hot [None]
  - Urticaria [None]

NARRATIVE: CASE EVENT DATE: 20151101
